FAERS Safety Report 8883366 (Version 2)
Quarter: 2012Q4

REPORT INFORMATION
  Report Type: 
  Country: NO (occurrence: NO)
  Receive Date: 20121102
  Receipt Date: 20121119
  Transmission Date: 20130627
  Serious: Yes (Death)
  Sender: FDA-Public Use
  Company Number: NO-JNJFOC-20121014760

PATIENT
  Age: 86 Year
  Sex: Male

DRUGS (3)
  1. HALOPERIDOL [Suspect]
     Indication: AGITATION
     Route: 065
     Dates: start: 20120915, end: 20120916
  2. ZYPREXA [Suspect]
     Indication: AGITATION
     Route: 065
     Dates: start: 20120916, end: 20120916
  3. ERYTHROMYCIN [Interacting]
     Indication: PRODUCT USED FOR UNKNOWN INDICATION
     Route: 065

REACTIONS (6)
  - Rhabdomyolysis [Fatal]
  - Renal failure [Fatal]
  - Neuroleptic malignant syndrome [Fatal]
  - Myocardial ischaemia [Fatal]
  - Drug interaction [Unknown]
  - Drug ineffective [Unknown]
